FAERS Safety Report 5081956-3 (Version None)
Quarter: 2006Q3

REPORT INFORMATION
  Report Type: 
  Country: None (occurrence: None)
  Receive Date: 20060811
  Receipt Date: 20060801
  Transmission Date: 20061208
  Serious: Yes (Other)
  Sender: FDA-Public Use
  Company Number: 230007M06ESP

PATIENT
  Age: 35 Year
  Sex: Female
  Weight: 85 kg

DRUGS (3)
  1. REBIF [Suspect]
     Indication: MULTIPLE SCLEROSIS
     Dosage: 44, 3 IN 1 WEEKS, SUBCUTANEOUS
     Route: 058
     Dates: start: 20030516, end: 20051118
  2. IBUPROFEN [Concomitant]
  3. CLOMIPRAMINE HCL [Concomitant]

REACTIONS (2)
  - DIABETES MELLITUS [None]
  - HEPATITIS CHOLESTATIC [None]
